FAERS Safety Report 9557795 (Version 1)
Quarter: 2013Q3

REPORT INFORMATION
  Report Type: Spontaneous
  Country: US (occurrence: None)
  Receive Date: 20130724
  Receipt Date: 20130724
  Transmission Date: 20140515
  Serious: Yes (Other)
  Sender: FDA-Public Use
  Company Number: PHEH2013US005374

PATIENT
  Age: 57 Year
  Sex: Male
  Weight: 61.2 kg

DRUGS (1)
  1. GILENYA [Suspect]
     Route: 048
     Dates: start: 20130304

REACTIONS (7)
  - Fatigue [None]
  - Abdominal pain upper [None]
  - Depressed mood [None]
  - Headache [None]
  - Cough [None]
  - Diarrhoea [None]
  - Decreased appetite [None]
